FAERS Safety Report 25204600 (Version 1)
Quarter: 2025Q2

REPORT INFORMATION
  Report Type: Spontaneous
  Country: CN (occurrence: CN)
  Receive Date: 20250416
  Receipt Date: 20250416
  Transmission Date: 20250716
  Serious: Yes (Life-Threatening, Other)
  Sender: PURDUE
  Company Number: CN-NAPPMUNDI-GBR-2025-0124874

PATIENT
  Age: 54 Year
  Sex: Female

DRUGS (1)
  1. OXYCODONE HYDROCHLORIDE [Suspect]
     Active Substance: OXYCODONE HYDROCHLORIDE
     Indication: Analgesic therapy
     Dosage: 20 MILLIGRAM, Q12H
     Route: 048
     Dates: start: 20250403, end: 20250404

REACTIONS (7)
  - Urinary retention [Recovering/Resolving]
  - Oedema [Recovering/Resolving]
  - Respiratory depression [Recovering/Resolving]
  - Miosis [Recovering/Resolving]
  - Cheyne-Stokes respiration [Recovering/Resolving]
  - Blood pressure decreased [Recovering/Resolving]
  - Somnolence [Recovering/Resolving]

NARRATIVE: CASE EVENT DATE: 20250401
